FAERS Safety Report 18214187 (Version 3)
Quarter: 2020Q3

REPORT INFORMATION
  Report Type: Spontaneous
  Country: AU (occurrence: AU)
  Receive Date: 20200831
  Receipt Date: 20200909
  Transmission Date: 20201103
  Serious: Yes (Hospitalization, Other)
  Sender: FDA-Public Use
  Company Number: AU-OTSUKA-2020_020738

PATIENT
  Age: 30 Year
  Sex: Male

DRUGS (14)
  1. ABILIFY MAINTENA [Concomitant]
     Active Substance: ARIPIPRAZOLE
     Dosage: 10 MG, UNK
     Route: 065
     Dates: start: 2015
  2. PALIPERIDONE. [Concomitant]
     Active Substance: PALIPERIDONE
     Indication: PRODUCT USED FOR UNKNOWN INDICATION
     Dosage: 150 MG, UNK
     Route: 065
     Dates: start: 2014
  3. ABILIFY MAINTENA [Concomitant]
     Active Substance: ARIPIPRAZOLE
     Dosage: 5 MG, UNK
     Route: 065
     Dates: start: 2017
  4. QUETIAPINE. [Concomitant]
     Active Substance: QUETIAPINE
     Indication: PRODUCT USED FOR UNKNOWN INDICATION
     Dosage: UNK
     Route: 065
     Dates: start: 2013
  5. INVEGA [Concomitant]
     Active Substance: PALIPERIDONE
     Dosage: 25 MG, UNK
     Route: 065
     Dates: start: 2017
  6. SUSTENA [Concomitant]
     Indication: PRODUCT USED FOR UNKNOWN INDICATION
     Dosage: UNK
     Route: 065
     Dates: end: 2018
  7. INVEGA [Concomitant]
     Active Substance: PALIPERIDONE
     Indication: PRODUCT USED FOR UNKNOWN INDICATION
     Dosage: 3 MG, UNK
     Route: 065
     Dates: start: 2015
  8. PALIPERIDONE. [Concomitant]
     Active Substance: PALIPERIDONE
     Dosage: 50 MG, UNK
     Route: 065
     Dates: start: 2016
  9. ABILIFY MAINTENA [Concomitant]
     Active Substance: ARIPIPRAZOLE
     Indication: PRODUCT USED FOR UNKNOWN INDICATION
     Dosage: 10 MG, UNK
     Route: 065
     Dates: start: 2013
  10. ABILIFY MAINTENA [Concomitant]
     Active Substance: ARIPIPRAZOLE
     Dosage: 5 MG, UNK
     Route: 065
     Dates: start: 2016
  11. INVEGA [Concomitant]
     Active Substance: PALIPERIDONE
     Dosage: 75 MG, UNK
     Route: 065
     Dates: start: 2016
  12. ABILIFY MAINTENA [Concomitant]
     Active Substance: ARIPIPRAZOLE
     Dosage: 10 MG, UNK
     Route: 065
     Dates: start: 2014
  13. REXULTI [Suspect]
     Active Substance: BREXPIPRAZOLE
     Indication: PRODUCT USED FOR UNKNOWN INDICATION
     Dosage: 2 MG, UNK
     Route: 065
  14. PALIPERIDONE. [Concomitant]
     Active Substance: PALIPERIDONE
     Dosage: 100 MG, UNK
     Route: 065
     Dates: start: 2015

REACTIONS (8)
  - Cardiac arrest [Unknown]
  - Syncope [Unknown]
  - Presyncope [Unknown]
  - Sinus node dysfunction [Unknown]
  - Chest pain [Unknown]
  - Orthostatic hypertension [Unknown]
  - Cardiac pacemaker insertion [Unknown]
  - Dizziness [Unknown]

NARRATIVE: CASE EVENT DATE: 2018
